FAERS Safety Report 20773406 (Version 2)
Quarter: 2022Q2

REPORT INFORMATION
  Report Type: Report from Study
  Country: KR (occurrence: KR)
  Receive Date: 20220502
  Receipt Date: 20220519
  Transmission Date: 20220720
  Serious: Yes (Hospitalization, Other)
  Sender: FDA-Public Use
  Company Number: KR-TAKEDA-2022TUS027518

PATIENT
  Age: 68 Year
  Sex: Female
  Weight: 66.5 kg

DRUGS (33)
  1. IXAZOMIB [Suspect]
     Active Substance: IXAZOMIB
     Indication: Plasma cell myeloma
     Dosage: 4 MILLIGRAM
     Route: 048
     Dates: start: 20211220
  2. DEXAMETHASONE [Suspect]
     Active Substance: DEXAMETHASONE
     Indication: Plasma cell myeloma
     Dosage: 20 MILLIGRAM, 2/WEEK
     Route: 048
     Dates: start: 20211220
  3. LENALIDOMIDE [Suspect]
     Active Substance: LENALIDOMIDE
     Indication: Plasma cell myeloma
     Dosage: 25 MILLIGRAM
     Route: 048
     Dates: start: 20211220, end: 20220109
  4. LENALIDOMIDE [Suspect]
     Active Substance: LENALIDOMIDE
     Dosage: 13 MILLIGRAM
     Route: 048
     Dates: start: 20220117
  5. PHENIRAMINE [Concomitant]
     Active Substance: PHENIRAMINE
     Indication: Urticaria
     Dosage: 4 MILLIGRAM
     Route: 065
     Dates: start: 20211222, end: 20211222
  6. NAK200 [Concomitant]
     Indication: Prophylaxis
     Dosage: 100 MILLILITER
     Route: 042
     Dates: start: 20211223, end: 20211223
  7. NAK200 [Concomitant]
     Indication: Asthenia
     Dosage: 200 MILLILITER
     Route: 042
     Dates: start: 20211227, end: 20211227
  8. NASALINE PLUS [Concomitant]
     Indication: Prophylaxis
     Dosage: 75 MILLILITER
     Route: 045
     Dates: start: 20211227, end: 20211227
  9. ASPIRIN [Concomitant]
     Active Substance: ASPIRIN
     Indication: Cardiovascular event prophylaxis
     Dosage: 100 MILLIGRAM
     Route: 048
     Dates: start: 20211221, end: 20211226
  10. Vacrax [Concomitant]
     Indication: Infection prophylaxis
     Dosage: 400 MILLIGRAM
     Route: 048
     Dates: end: 20220213
  11. ALBUMIN HUMAN [Concomitant]
     Active Substance: ALBUMIN HUMAN
     Indication: Prophylaxis
     Dosage: 100 MILLILITER
     Route: 042
     Dates: start: 20211227, end: 20211227
  12. ALLOPURINOL [Concomitant]
     Active Substance: ALLOPURINOL
     Indication: Prophylaxis
     Dosage: 100 MILLIGRAM
     Route: 048
     Dates: start: 20211220, end: 20211227
  13. CALCIUM GLUCONATE [Concomitant]
     Active Substance: CALCIUM GLUCONATE
     Indication: Prophylaxis
     Dosage: 2 GRAM
     Route: 042
     Dates: start: 20211223, end: 20211223
  14. CALCIUM GLUCONATE [Concomitant]
     Active Substance: CALCIUM GLUCONATE
     Dosage: 4 GRAM
     Route: 042
     Dates: start: 20211227, end: 20211227
  15. Vitaferol [Concomitant]
     Indication: Osteoporosis
     Dosage: UNK
     Route: 048
     Dates: end: 20220213
  16. CORTISONE ACETATE [Concomitant]
     Active Substance: CORTISONE ACETATE
     Indication: Infection prophylaxis
     Dosage: 100 MILLIGRAM
     Route: 042
     Dates: start: 20211222, end: 20220214
  17. GLOBULIN [Concomitant]
     Indication: Hypogammaglobulinaemia
     Dosage: 33800 MILLIGRAM
     Route: 042
     Dates: start: 20211222, end: 20220214
  18. LAFUTIDINE [Concomitant]
     Active Substance: LAFUTIDINE
     Indication: Gastrooesophageal reflux disease
     Dosage: 15 MILLIGRAM
     Route: 048
     Dates: start: 20211221, end: 20211221
  19. LAFUTIDINE [Concomitant]
     Active Substance: LAFUTIDINE
     Dosage: 10 MILLIGRAM
     Route: 048
     Dates: start: 20211222, end: 20220213
  20. MAGNESIUM HYDROXIDE [Concomitant]
     Active Substance: MAGNESIUM HYDROXIDE
     Indication: Constipation
     Dosage: 500 MILLIGRAM
     Route: 048
     Dates: start: 20211220, end: 20211230
  21. MELATONIN [Concomitant]
     Active Substance: MELATONIN
     Indication: Prophylaxis
     Dosage: 2 MILLIGRAM
     Route: 048
     Dates: start: 20211226, end: 20211227
  22. ALSOBEN [Concomitant]
     Indication: Gastrointestinal disorder prophylaxis
     Dosage: 100 MICROGRAM
     Route: 048
     Dates: start: 20211229, end: 20220124
  23. MORPHINE HYDROCHLORIDE [Concomitant]
     Active Substance: MORPHINE HYDROCHLORIDE
     Indication: Pain
     Dosage: 6 MILLIGRAM
     Route: 042
     Dates: start: 20211220, end: 20211220
  24. MORPHINE HYDROCHLORIDE [Concomitant]
     Active Substance: MORPHINE HYDROCHLORIDE
     Dosage: 3 MILLIGRAM
     Route: 042
     Dates: start: 20211221, end: 20211222
  25. MORPHINE HYDROCHLORIDE [Concomitant]
     Active Substance: MORPHINE HYDROCHLORIDE
     Dosage: 6 MILLIGRAM
     Route: 042
     Dates: start: 20211223, end: 20211223
  26. MORPHINE HYDROCHLORIDE [Concomitant]
     Active Substance: MORPHINE HYDROCHLORIDE
     Dosage: 3 MILLIGRAM
     Route: 042
     Dates: start: 20211224, end: 20211224
  27. PANTOPRAZOLE SODIUM [Concomitant]
     Active Substance: PANTOPRAZOLE SODIUM
     Indication: Gastrooesophageal reflux disease
     Dosage: 40 MILLIGRAM
     Route: 042
     Dates: start: 20211220, end: 20211222
  28. K CONTIN [Concomitant]
     Indication: Hypokalaemia
     Dosage: 600 MILLIGRAM
     Route: 048
     Dates: start: 20211230, end: 20211231
  29. SODIUM BICARBONATE [Concomitant]
     Active Substance: SODIUM BICARBONATE
     Indication: Prophylaxis
     Dosage: 40 MILLIEQUIVALENT
     Route: 042
     Dates: start: 20211221, end: 20220103
  30. SULFAMETHOXAZOLE\TRIMETHOPRIM [Concomitant]
     Active Substance: SULFAMETHOXAZOLE\TRIMETHOPRIM
     Indication: Infection prophylaxis
     Dosage: 400 MILLIGRAM
     Route: 048
     Dates: end: 20020213
  31. TORSEMIDE [Concomitant]
     Active Substance: TORSEMIDE
     Indication: Oedema
     Dosage: 10 MILLIGRAM
     Route: 048
     Dates: start: 20211220, end: 20211226
  32. ZOLENIC [Concomitant]
     Indication: Plasma cell myeloma
     Dosage: 4 MILLIGRAM
     Route: 042
     Dates: start: 20211220, end: 20211220
  33. ZOLPIDEM TARTRATE [Concomitant]
     Active Substance: ZOLPIDEM TARTRATE
     Indication: Prophylaxis
     Dosage: 6.25 MILLIGRAM
     Route: 048
     Dates: start: 20211228, end: 20220107

REACTIONS (1)
  - Febrile neutropenia [Recovered/Resolved]

NARRATIVE: CASE EVENT DATE: 20220101
